FAERS Safety Report 4590133-1 (Version None)
Quarter: 2005Q1

REPORT INFORMATION
  Report Type: 
  Country: None (occurrence: None)
  Receive Date: 20050217
  Receipt Date: 20050204
  Transmission Date: 20050727
  Serious: Yes (Other)
  Sender: FDA-Public Use
  Company Number: 2004112569

PATIENT
  Sex: Female

DRUGS (4)
  1. ZITHROMAX [Suspect]
     Indication: EAR INFECTION
     Dates: end: 20041106
  2. CLARITHROMYCIN [Suspect]
     Indication: EAR INFECTION
     Dosage: (2 IN 1 D), ORAL
     Route: 048
     Dates: start: 20041119, end: 20041125
  3. FUSIDIC ACID [Concomitant]
  4. AMOXICILLIN [Concomitant]

REACTIONS (1)
  - TOOTH DISCOLOURATION [None]
